FAERS Safety Report 7944286-5 (Version None)
Quarter: 2011Q4

REPORT INFORMATION
  Report Type: 
  Country: None (occurrence: None)
  Receive Date: 20111129
  Receipt Date: 20111115
  Transmission Date: 20120403
  Serious: No
  Sender: FDA-Public Use
  Company Number: US-BIOGENIDEC-2011BI044083

PATIENT
  Sex: Male

DRUGS (3)
  1. TYSABRI [Suspect]
     Indication: MULTIPLE SCLEROSIS
     Route: 042
     Dates: start: 20110107
  2. TYSABRI [Suspect]
     Route: 042
     Dates: start: 20070821, end: 20100526
  3. CHOLESTEROL PILLS (NOS) [Concomitant]
     Indication: BLOOD CHOLESTEROL INCREASED
     Dates: start: 20101001

REACTIONS (5)
  - DRUG INEFFECTIVE [None]
  - GAIT DISTURBANCE [None]
  - BALANCE DISORDER [None]
  - MOBILITY DECREASED [None]
  - FALL [None]
